FAERS Safety Report 10048674 (Version 3)
Quarter: 2015Q1

REPORT INFORMATION
  Report Type: Spontaneous
  Country: US (occurrence: US)
  Receive Date: 20140331
  Receipt Date: 20150327
  Transmission Date: 20150720
  Serious: Yes (Hospitalization, Other)
  Sender: FDA-Public Use
  Company Number: US-AMGEN-USASP2014021609

PATIENT
  Age: 83 Year
  Sex: Female

DRUGS (3)
  1. PROLIA [Suspect]
     Active Substance: DENOSUMAB
     Dosage: 60 MG, UNK
     Route: 058
     Dates: start: 20141002
  2. PROLIA [Suspect]
     Active Substance: DENOSUMAB
     Indication: OSTEOPOROSIS POSTMENOPAUSAL
     Dosage: 60 MG, Q6MO
     Route: 058
     Dates: start: 20130927
  3. PROLIA [Suspect]
     Active Substance: DENOSUMAB
     Dosage: 60 MG, UNK
     Route: 058
     Dates: start: 20140331

REACTIONS (15)
  - Disturbance in attention [Unknown]
  - Frustration [Unknown]
  - Vaginal haemorrhage [Unknown]
  - Metastatic neoplasm [Unknown]
  - Visual acuity reduced [Unknown]
  - Dry mouth [Unknown]
  - Insomnia [Unknown]
  - Rash [Unknown]
  - Weight decreased [Unknown]
  - Nervousness [Unknown]
  - Fatigue [Unknown]
  - Papillary serous endometrial carcinoma [Unknown]
  - Hypertension [Unknown]
  - Malaise [Unknown]
  - Dizziness [Unknown]

NARRATIVE: CASE EVENT DATE: 2014
